FAERS Safety Report 13065656 (Version 1)
Quarter: 2016Q4

REPORT INFORMATION
  Report Type: Spontaneous
  Country: BR (occurrence: BR)
  Receive Date: 20161227
  Receipt Date: 20161227
  Transmission Date: 20170207
  Serious: Yes (Other)
  Sender: FDA-Public Use
  Company Number: BR-ABBVIE-16K-020-1808614-00

PATIENT
  Sex: Female
  Weight: 75 kg

DRUGS (2)
  1. HUMIRA [Suspect]
     Active Substance: ADALIMUMAB
     Indication: ANKYLOSING SPONDYLITIS
     Route: 058
     Dates: start: 201403, end: 201606
  2. HUMIRA [Suspect]
     Active Substance: ADALIMUMAB
     Indication: SPONDYLITIS

REACTIONS (10)
  - Gallbladder cholesterolosis [Recovered/Resolved]
  - Colitis [Unknown]
  - Colitis ulcerative [Unknown]
  - Gallbladder perforation [Unknown]
  - Biopsy gallbladder abnormal [Unknown]
  - Gastrointestinal tract adenoma [Recovered/Resolved]
  - Lipomatosis [Recovered/Resolved]
  - Biopsy intestine abnormal [Unknown]
  - Dysplasia [Unknown]
  - Fat tissue increased [Unknown]
